FAERS Safety Report 26082491 (Version 1)
Quarter: 2025Q4

REPORT INFORMATION
  Report Type: Spontaneous
  Country: AU (occurrence: None)
  Receive Date: 20251123
  Receipt Date: 20251123
  Transmission Date: 20260117
  Serious: Yes (Disabling)
  Sender: FDA-CTU
  Company Number: None

PATIENT
  Age: 45 Year
  Sex: Female
  Weight: 60 kg

DRUGS (3)
  1. TRAMADOL [Suspect]
     Active Substance: TRAMADOL
     Indication: Pain
     Dosage: EVERY 12 HOURS ORAL
     Route: 048
     Dates: start: 20180101
  2. Tramadol SR 50mg [Concomitant]
  3. Tramadol Oral Liquud [Concomitant]

REACTIONS (10)
  - Withdrawal syndrome [None]
  - Emotional disorder [None]
  - Influenza like illness [None]
  - Dry mouth [None]
  - Teeth brittle [None]
  - Hyperaesthesia teeth [None]
  - Dental caries [None]
  - Suicidal ideation [None]
  - Brain injury [None]
  - Electric shock sensation [None]

NARRATIVE: CASE EVENT DATE: 20240130
